FAERS Safety Report 9753779 (Version 2)
Quarter: 2013Q4

REPORT INFORMATION
  Report Type: Spontaneous
  Country: US (occurrence: US)
  Receive Date: 20131213
  Receipt Date: 20131213
  Transmission Date: 20140711
  Serious: No
  Sender: FDA-Public Use
  Company Number: US-GILEAD-2010-0026540

PATIENT
  Sex: Female
  Weight: 68.49 kg

DRUGS (6)
  1. LETAIRIS [Suspect]
     Indication: PULMONARY ARTERIAL HYPERTENSION
     Route: 048
     Dates: start: 20090709, end: 20100116
  2. TRAZODONE [Concomitant]
  3. LITHIUM [Concomitant]
  4. FAMOTIDINE [Concomitant]
  5. ASPIRIN [Concomitant]
  6. HYDROCODONE/APAP [Concomitant]

REACTIONS (1)
  - Liver function test abnormal [Unknown]
